FAERS Safety Report 4406607-X (Version None)
Quarter: 2004Q3

REPORT INFORMATION
  Report Type: 
  Country: None (occurrence: None)
  Receive Date: 20040723
  Receipt Date: 20040720
  Transmission Date: 20050211
  Serious: Yes (Hospitalization)
  Sender: FDA-Public Use
  Company Number: FR-GLAXOSMITHKLINE-B0340068A

PATIENT
  Age: 43 Year
  Sex: Male

DRUGS (10)
  1. COMBIVIR [Suspect]
     Indication: HIV INFECTION
     Dosage: 2TAB PER DAY
     Dates: start: 19970915
  2. CRIXIVAN [Suspect]
     Indication: HIV INFECTION
     Dosage: 2UNIT PER DAY
     Route: 048
     Dates: start: 19991115
  3. NORVIR [Suspect]
     Indication: HIV INFECTION
     Dosage: 4UNIT PER DAY
     Route: 048
     Dates: start: 19991115
  4. VIRAMUNE [Suspect]
     Indication: HIV INFECTION
     Dosage: 2UNIT PER DAY
     Route: 048
     Dates: start: 20020626
  5. AVLOCARDYL LP [Suspect]
     Indication: HYPERTENSION
     Dosage: 160MG PER DAY
     Route: 048
  6. LIPUR [Suspect]
     Indication: HYPERLIPIDAEMIA
     Dosage: 450MG PER DAY
     Route: 048
  7. BRICANYL [Concomitant]
  8. PULMICORT [Concomitant]
  9. LOPERAMIDE HCL [Concomitant]
  10. IMOVANE [Concomitant]
     Route: 048

REACTIONS (1)
  - ANGINA UNSTABLE [None]
